FAERS Safety Report 9045724 (Version 1)
Quarter: 2013Q1

REPORT INFORMATION
  Report Type: Report from Study
  Country: US (occurrence: US)
  Receive Date: 20130131
  Receipt Date: 20130131
  Transmission Date: 20140127
  Serious: No
  Sender: FDA-Public Use
  Company Number: US-ABBOTT-12P-163-1013528-00

PATIENT
  Age: 26 Year
  Sex: Female

DRUGS (8)
  1. HUMIRA [Suspect]
     Indication: CROHN^S DISEASE
     Dates: start: 20120725
  2. HUMIRA [Suspect]
  3. TRAZODONE [Concomitant]
     Indication: INSOMNIA
     Dosage: AT HOUR OF SLEEP
  4. BUSPAR [Concomitant]
     Indication: AFFECTIVE DISORDER
  5. LAMICTAL [Concomitant]
     Indication: AFFECTIVE DISORDER
  6. LAMICTAL [Concomitant]
     Indication: ANXIETY
  7. CYMBALTA [Concomitant]
     Indication: PRODUCT USED FOR UNKNOWN INDICATION
     Dosage: 30MG DAILY
  8. CYMBALTA [Concomitant]
     Dosage: 60MG DAILY

REACTIONS (1)
  - Crohn^s disease [Recovering/Resolving]
